FAERS Safety Report 7892361-6 (Version None)
Quarter: 2011Q4

REPORT INFORMATION
  Report Type: 
  Country: None (occurrence: None)
  Receive Date: 20111101
  Receipt Date: 20111018
  Transmission Date: 20120403
  Serious: Yes (Other)
  Sender: FDA-Public Use
  Company Number: ADR-2011-11391

PATIENT
  Sex: Female

DRUGS (1)
  1. BACLOFEN [Suspect]
     Indication: CEREBRAL PALSY
     Dosage: 325.42 MCG, DAILY

REACTIONS (1)
  - IMPLANT SITE EROSION [None]
